FAERS Safety Report 6829401-9 (Version None)
Quarter: 2010Q3

REPORT INFORMATION
  Report Type: 
  Country: None (occurrence: None)
  Receive Date: 20100709
  Receipt Date: 20070302
  Transmission Date: 20110219
  Serious: No
  Sender: FDA-Public Use
  Company Number: US-PFIZER INC-2007017281

PATIENT
  Sex: Male
  Weight: 77.11 kg

DRUGS (3)
  1. CHANTIX [Suspect]
     Indication: SMOKING CESSATION THERAPY
  2. BENICAR [Concomitant]
     Indication: HYPERTENSION
  3. CRESTOR [Concomitant]
     Indication: BLOOD CHOLESTEROL INCREASED

REACTIONS (3)
  - ABNORMAL DREAMS [None]
  - FLATULENCE [None]
  - NAUSEA [None]
